FAERS Safety Report 9339055 (Version 1)
Quarter: 2013Q2

REPORT INFORMATION
  Report Type: Spontaneous
  Country: DE (occurrence: DE)
  Receive Date: 20130610
  Receipt Date: 20130610
  Transmission Date: 20140414
  Serious: Yes (Other)
  Sender: FDA-Public Use
  Company Number: DE-MERCK-1304DEU016273

PATIENT
  Age: 73 Year
  Sex: Male
  Weight: 100 kg

DRUGS (4)
  1. VELMETIA [Suspect]
     Indication: TYPE 2 DIABETES MELLITUS
     Dosage: 50 MG / 1000 MG BID
     Route: 048
     Dates: start: 201110, end: 201304
  2. SIMVASTATIN [Concomitant]
     Indication: HYPERLIPIDAEMIA
     Dosage: STRENGTH: 10 MG
     Route: 048
  3. ASPIRIN [Concomitant]
     Indication: ANGIOPATHY
     Dosage: STRENGTH: 100 MG
     Route: 048
  4. TAMSULOSIN HYDROCHLORIDE [Concomitant]
     Indication: BENIGN PROSTATIC HYPERPLASIA
     Dosage: STRENGTH: 0.4 MG
     Route: 048

REACTIONS (4)
  - Lipase increased [Recovered/Resolved]
  - Lipase increased [Recovered/Resolved]
  - Discomfort [Recovered/Resolved]
  - Polymyalgia rheumatica [Not Recovered/Not Resolved]
